FAERS Safety Report 5556546-6 (Version None)
Quarter: 2007Q4

REPORT INFORMATION
  Report Type: 
  Country: None (occurrence: None)
  Receive Date: 20071130
  Receipt Date: 20070821
  Transmission Date: 20080405
  Serious: No
  Sender: FDA-Public Use
  Company Number: US200708004711

PATIENT
  Age: 45 Year
  Sex: Female

DRUGS (2)
  1. BYETTA [Suspect]
     Dosage: SUBCUTANEOUS
     Route: 058
     Dates: start: 20070501
  2. .. [Concomitant]

REACTIONS (2)
  - ENERGY INCREASED [None]
  - WEIGHT DECREASED [None]
